FAERS Safety Report 16315072 (Version 3)
Quarter: 2019Q2

REPORT INFORMATION
  Report Type: Spontaneous
  Country: PL (occurrence: PL)
  Receive Date: 20190515
  Receipt Date: 20190528
  Transmission Date: 20190711
  Serious: Yes (Hospitalization, Other)
  Sender: FDA-Public Use
  Company Number: PL-PFIZER INC-2019202019

PATIENT
  Age: 75 Year
  Sex: Female

DRUGS (10)
  1. PREDNISONE. [Suspect]
     Active Substance: PREDNISONE
     Dosage: THE 6TH CYCLE OF R-COM
     Dates: start: 201706
  2. CYCLOPHOSPHAMIDE. [Suspect]
     Active Substance: CYCLOPHOSPHAMIDE
     Indication: DIFFUSE LARGE B-CELL LYMPHOMA STAGE II
     Dosage: 750 MG/M2, 1X/DAY
     Route: 042
     Dates: start: 20170203
  3. NON-PEGYLATED LIPOSOMAL DOXORUBICIN HYDROCHL. [Suspect]
     Active Substance: DOXORUBICIN HYDROCHLORIDE
     Indication: DIFFUSE LARGE B-CELL LYMPHOMA STAGE II
     Dosage: 50 MG/M2, 1X/DAY
     Route: 042
     Dates: start: 20170203
  4. CYCLOPHOSPHAMIDE. [Suspect]
     Active Substance: CYCLOPHOSPHAMIDE
     Dosage: 6TH CYCLE OF R-COM P
     Route: 042
     Dates: start: 201706
  5. NON-PEGYLATED LIPOSOMAL DOXORUBICIN HYDROCHL. [Suspect]
     Active Substance: DOXORUBICIN HYDROCHLORIDE
     Dosage: UNK, CYCLIC ( 6 CYCLES)
     Dates: start: 201706
  6. RITUXIMAB. [Suspect]
     Active Substance: RITUXIMAB
     Indication: DIFFUSE LARGE B-CELL LYMPHOMA STAGE II
     Dosage: 375 MG/M2, 1X/DAY
     Route: 042
     Dates: start: 20170203
  7. VINCRISTINE [Suspect]
     Active Substance: VINCRISTINE
     Indication: DIFFUSE LARGE B-CELL LYMPHOMA STAGE II
     Dosage: 1 MG/M2, 1X/DAY
     Route: 042
     Dates: start: 20170203
  8. PREDNISONE. [Suspect]
     Active Substance: PREDNISONE
     Indication: DIFFUSE LARGE B-CELL LYMPHOMA STAGE II
     Dosage: 100 MG, ON DAY 1 TO 5
     Route: 065
     Dates: start: 20170203
  9. VINCRISTINE [Suspect]
     Active Substance: VINCRISTINE
     Dosage: THE 6TH CYCLE OF R-COM
     Dates: start: 201706
  10. RITUXIMAB. [Suspect]
     Active Substance: RITUXIMAB
     Dosage: THE 6TH CYCLE OF R-COM P
     Dates: start: 201706

REACTIONS (5)
  - Cytopenia [Unknown]
  - Syncope [Unknown]
  - Anaemia [Unknown]
  - Febrile neutropenia [Recovered/Resolved]
  - Pancytopenia [Unknown]
